FAERS Safety Report 4289519-4 (Version None)
Quarter: 2004Q1

REPORT INFORMATION
  Report Type: 
  Country: None (occurrence: None)
  Receive Date: 20040113
  Receipt Date: 20030620
  Transmission Date: 20041129
  Serious: Yes (Other)
  Sender: FDA-Public Use
  Company Number: 2003023333

PATIENT
  Age: 60 Year
  Sex: Female

DRUGS (5)
  1. DIFLUCAN [Suspect]
     Indication: ORAL CANDIDIASIS
     Dosage: 400 MG (DAILY), ORAL
     Route: 048
     Dates: start: 20030501, end: 20030503
  2. PREDNISONE [Concomitant]
  3. MONTELUKAST SODIUM (MONTELKAST SODIUM) [Concomitant]
  4. SERETIDE MITE (FLUTICASEON PROPIONATE, SALMETEROL XINAFOATE) [Concomitant]
  5. COMBIVENT [Concomitant]

REACTIONS (3)
  - HEPATIC ENZYME INCREASED [None]
  - JAUNDICE [None]
  - VOMITING [None]
